FAERS Safety Report 17933596 (Version 1)
Quarter: 2020Q2

REPORT INFORMATION
  Report Type: Report from Study
  Country: None (occurrence: GB)
  Receive Date: 20200624
  Receipt Date: 20200624
  Transmission Date: 20200714
  Serious: Yes (Other)
  Sender: FDA-Public Use
  Company Number: GB-ABBVIE-20K-167-3455017-00

PATIENT
  Sex: Male

DRUGS (1)
  1. DUODOPA [Suspect]
     Active Substance: CARBIDOPA\LEVODOPA
     Indication: PARKINSON^S DISEASE
     Dosage: 100ML CASSETTE?5MG/1ML?20MG/1ML\AS DIRECTED
     Route: 050

REACTIONS (4)
  - Impaired quality of life [Unknown]
  - Dystonia [Unknown]
  - Medication error [Unknown]
  - Seizure [Unknown]

NARRATIVE: CASE EVENT DATE: 2020
